FAERS Safety Report 17272580 (Version 1)
Quarter: 2020Q1

REPORT INFORMATION
  Report Type: Spontaneous
  Country: US (occurrence: US)
  Receive Date: 20200115
  Receipt Date: 20200115
  Transmission Date: 20200409
  Serious: Yes (Other)
  Sender: FDA-Public Use
  Company Number: US-ASTRAZENECA-2020SE03639

PATIENT
  Sex: Female

DRUGS (1)
  1. SYMBICORT [Suspect]
     Active Substance: BUDESONIDE\FORMOTEROL FUMARATE DIHYDRATE
     Indication: CHRONIC OBSTRUCTIVE PULMONARY DISEASE
     Dosage: UNKNOWN UNKNOWN
     Route: 055

REACTIONS (6)
  - Dry eye [Not Recovered/Not Resolved]
  - Inflammation [Unknown]
  - Glaucoma [Not Recovered/Not Resolved]
  - Eye degenerative disorder [Unknown]
  - Photophobia [Not Recovered/Not Resolved]
  - Retinal disorder [Unknown]

NARRATIVE: CASE EVENT DATE: 2001
